FAERS Safety Report 25812362 (Version 1)
Quarter: 2025Q3

REPORT INFORMATION
  Report Type: Report from Study
  Country: CA (occurrence: CA)
  Receive Date: 20250917
  Receipt Date: 20250917
  Transmission Date: 20251020
  Serious: Yes (Other)
  Sender: TAKEDA
  Company Number: CA-TAKEDA-2025TUS079963

PATIENT
  Sex: Female

DRUGS (2)
  1. VEDOLIZUMAB [Suspect]
     Active Substance: VEDOLIZUMAB
     Indication: Colitis ulcerative
  2. VEDOLIZUMAB [Suspect]
     Active Substance: VEDOLIZUMAB
     Dosage: 300 MILLIGRAM, Q4WEEKS
     Dates: start: 20210429, end: 20250710

REACTIONS (6)
  - Colitis ulcerative [Unknown]
  - Weight increased [Unknown]
  - Hunger [Unknown]
  - Iron deficiency anaemia [Unknown]
  - Large intestine polyp [Unknown]
  - COVID-19 [Unknown]
